FAERS Safety Report 7925572-1 (Version None)
Quarter: 2011Q4

REPORT INFORMATION
  Report Type: 
  Country: None (occurrence: None)
  Receive Date: 20111118
  Receipt Date: 20110408
  Transmission Date: 20120403
  Serious: No
  Sender: FDA-Public Use
  Company Number: US-AMGEN-USASP2011019001

PATIENT
  Age: 57 Year
  Sex: Female
  Weight: 52.608 kg

DRUGS (9)
  1. ESTRADIOL [Concomitant]
     Dosage: 200 MG, UNK
  2. FOLIC ACID [Concomitant]
     Dosage: 20 MG, UNK
  3. ENBREL [Suspect]
     Indication: PRODUCT USED FOR UNKNOWN INDICATION
     Dosage: 50 MG, QWK
     Route: 058
  4. HUMALOG PEN MIX [Concomitant]
     Dosage: 100 ML, UNK
  5. METHOTREXATE [Concomitant]
     Dosage: 2.5 MG, UNK
  6. CALCIUM CARBONATE [Concomitant]
     Dosage: 600 MG, UNK
  7. LISINOPRIL [Concomitant]
     Dosage: 10 MG, UNK
  8. AMLODIPINE [Concomitant]
     Dosage: 10 MG, UNK
  9. PROBIOTIC FEMINA [Concomitant]

REACTIONS (1)
  - LARYNGITIS [None]
